FAERS Safety Report 14293621 (Version 1)
Quarter: 2017Q4

REPORT INFORMATION
  Report Type: Spontaneous
  Country: GB (occurrence: GB)
  Receive Date: 20171216
  Receipt Date: 20171216
  Transmission Date: 20180321
  Serious: Yes (Other)
  Sender: FDA-Public Use
  Company Number: GB-ROCHE-1999588

PATIENT
  Age: 84 Year
  Sex: Female

DRUGS (1)
  1. ERIVEDGE [Suspect]
     Active Substance: VISMODEGIB
     Indication: PRODUCT USED FOR UNKNOWN INDICATION
     Dosage: STARTED TREATMENT APPROXIMATELY 5 MONTHS AGO
     Route: 065

REACTIONS (2)
  - Drug effect decreased [Unknown]
  - Basal cell carcinoma [Not Recovered/Not Resolved]
